APPROVED DRUG PRODUCT: STERITALC
Active Ingredient: TALC
Strength: 4GM/VIAL
Dosage Form/Route: POWDER;INTRAPLEURAL
Application: N205555 | Product #003
Applicant: NOVATECH SA
Approved: May 1, 2017 | RLD: Yes | RS: Yes | Type: RX